FAERS Safety Report 5144681-6 (Version None)
Quarter: 2006Q4

REPORT INFORMATION
  Report Type: 
  Country: None (occurrence: None)
  Receive Date: 20061031
  Receipt Date: 20061024
  Transmission Date: 20070319
  Serious: Yes (Other)
  Sender: FDA-Public Use
  Company Number: 2006SP004932

PATIENT
  Age: 64 Year
  Sex: Female
  Weight: 82.5547 kg

DRUGS (2)
  1. PEG-INTRON [Suspect]
     Indication: HEPATITIS C
     Dosage: SC
     Route: 058
     Dates: start: 20060807
  2. RIBAVIRIN [Suspect]
     Indication: HEPATITIS C
     Dosage: PO
     Route: 048
     Dates: start: 20060807

REACTIONS (16)
  - ASTHENIA [None]
  - DEHYDRATION [None]
  - DYSGEUSIA [None]
  - DYSPNOEA [None]
  - FATIGUE [None]
  - HEART RATE INCREASED [None]
  - MEMORY IMPAIRMENT [None]
  - NAUSEA [None]
  - POLLAKIURIA [None]
  - POLYDIPSIA [None]
  - PRURITUS [None]
  - RASH GENERALISED [None]
  - SKIN HAEMORRHAGE [None]
  - VOMITING [None]
  - VOMITING PROJECTILE [None]
  - WEIGHT DECREASED [None]
